FAERS Safety Report 5444867-7 (Version None)
Quarter: 2007Q3

REPORT INFORMATION
  Report Type: 
  Country: None (occurrence: None)
  Receive Date: 20070906
  Receipt Date: 20070830
  Transmission Date: 20080115
  Serious: Yes (Hospitalization)
  Sender: FDA-Public Use
  Company Number: AU-ROCHE-496362

PATIENT
  Age: 81 Year
  Sex: Female
  Weight: 63 kg

DRUGS (4)
  1. CAPECITABINE [Suspect]
     Dosage: GIVEN ON DAYS 1-14, EVERY THREE WEEKS.
     Route: 048
     Dates: start: 20070321, end: 20070419
  2. BEVACIZUMAB [Suspect]
     Dosage: GIVEN ON DAY ONE OF A THREE WEEK CYCLE.
     Route: 042
     Dates: start: 20070321
  3. MITOMYCIN-C BULK POWDER [Suspect]
     Route: 042
     Dates: start: 20070321
  4. FLUCLOXACILLIN [Concomitant]
     Dates: start: 20070307

REACTIONS (1)
  - RENAL FAILURE ACUTE [None]
